FAERS Safety Report 8545012-1 (Version None)
Quarter: 2012Q3

REPORT INFORMATION
  Report Type: 
  Country: None (occurrence: None)
  Receive Date: 20120727
  Receipt Date: 20120719
  Transmission Date: 20120928
  Serious: Yes (Other)
  Sender: FDA-Public Use
  Company Number: IT-GLAXOSMITHKLINE-B0816429A

PATIENT
  Age: 60 Year
  Sex: Male

DRUGS (1)
  1. VOLIBRIS [Suspect]
     Indication: PULMONARY HYPERTENSION
     Route: 065

REACTIONS (1)
  - OEDEMA [None]
